FAERS Safety Report 9515995 (Version 2)
Quarter: 2014Q1

REPORT INFORMATION
  Report Type: Spontaneous
  Country: US (occurrence: None)
  Receive Date: 20130305
  Receipt Date: 20140306
  Transmission Date: 20141002
  Serious: Yes (Other)
  Sender: FDA-Public Use
  Company Number: 163-21880-12114176

PATIENT
  Age: 79 Year
  Sex: Female

DRUGS (2)
  1. REVLIMID (LENALIDOMIDE) (25 MILLIGRAM, CAPSULES) [Suspect]
     Indication: PLASMA CELL MYELOMA
     Dosage: 25 MG,  21 IN 28 D, PO
     Route: 048
     Dates: start: 201210
  2. PAIN MEDS (ANALGESICS) (UNKNOWN) [Concomitant]

REACTIONS (1)
  - Confusional state [None]
